FAERS Safety Report 8065802-1 (Version None)
Quarter: 2012Q1

REPORT INFORMATION
  Report Type: 
  Country: None (occurrence: None)
  Receive Date: 20120124
  Receipt Date: 20120119
  Transmission Date: 20120608
  Serious: Yes (Death)
  Sender: FDA-Public Use
  Company Number: PE-PFIZER INC-2012018417

PATIENT
  Age: 80 Year
  Sex: Female

DRUGS (1)
  1. ACCURETIC [Suspect]
     Indication: HYPERTENSION
     Dosage: 20 MG, 1X/DAY
     Route: 048

REACTIONS (1)
  - DEATH [None]
